FAERS Safety Report 21341242 (Version 2)
Quarter: 2022Q4

REPORT INFORMATION
  Report Type: Spontaneous
  Country: CN (occurrence: CN)
  Receive Date: 20220916
  Receipt Date: 20221111
  Transmission Date: 20230113
  Serious: Yes (Hospitalization, Other)
  Sender: FDA-Public Use
  Company Number: CN-ALKEM LABORATORIES LIMITED-CN-ALKEM-2022-09694

PATIENT
  Age: 19 Year
  Sex: Female

DRUGS (1)
  1. COLCHICINE [Suspect]
     Active Substance: COLCHICINE
     Dosage: 0.5 MG PER TABLET (80 COLCHICINE TABLETS)
     Route: 065

REACTIONS (13)
  - Acute kidney injury [Recovering/Resolving]
  - Acute respiratory failure [Recovering/Resolving]
  - Acidosis [Recovering/Resolving]
  - Anaemia [Recovering/Resolving]
  - Coagulopathy [Recovering/Resolving]
  - Gastrointestinal haemorrhage [Unknown]
  - Liver injury [Recovering/Resolving]
  - Myocardial injury [Recovering/Resolving]
  - Rhabdomyolysis [Unknown]
  - Completed suicide [Recovering/Resolving]
  - Thrombocytopenia [Recovering/Resolving]
  - Hypotension [Unknown]
  - Overdose [Unknown]
